FAERS Safety Report 9851979 (Version 1)
Quarter: 2014Q1

REPORT INFORMATION
  Report Type: Spontaneous
  Country: PH (occurrence: None)
  Receive Date: 20140127
  Receipt Date: 20140127
  Transmission Date: 20141002
  Serious: Yes (Death)
  Sender: FDA-Public Use
  Company Number: 2014P1000504

PATIENT
  Age: 16 Year
  Sex: Female

DRUGS (4)
  1. RIFAMPIN [Suspect]
     Indication: LYMPH NODE TUBERCULOSIS
  2. ISONIAZID [Suspect]
     Indication: LYMPH NODE TUBERCULOSIS
  3. PYRAZINAMIDE [Suspect]
     Indication: LYMPH NODE TUBERCULOSIS
  4. ETHAMBUTOL [Suspect]
     Indication: LYMPH NODE TUBERCULOSIS

REACTIONS (8)
  - Drug reaction with eosinophilia and systemic symptoms [None]
  - Acute respiratory distress syndrome [None]
  - Transaminases increased [None]
  - Leukocytosis [None]
  - Eosinophilia [None]
  - Hepatocellular injury [None]
  - Hypoxia [None]
  - Lung infiltration [None]
